FAERS Safety Report 5718731-X (Version None)
Quarter: 2008Q2

REPORT INFORMATION
  Report Type: 
  Country: None (occurrence: None)
  Receive Date: 20080425
  Receipt Date: 20080415
  Transmission Date: 20081010
  Serious: Yes (Disabling)
  Sender: FDA-Public Use
  Company Number: FR-PFIZER INC-2008033889

PATIENT
  Sex: Male

DRUGS (9)
  1. LYRICA [Suspect]
     Indication: TRIGEMINAL NEURALGIA
     Dates: start: 20060101, end: 20060101
  2. NEURONTIN [Suspect]
     Indication: TRIGEMINAL NEURALGIA
     Dates: start: 20060101, end: 20060623
  3. RETROVIR [Suspect]
     Indication: ACQUIRED IMMUNODEFICIENCY SYNDROME
  4. VIREAD [Suspect]
     Indication: ACQUIRED IMMUNODEFICIENCY SYNDROME
  5. INVIRASE [Suspect]
     Indication: ACQUIRED IMMUNODEFICIENCY SYNDROME
  6. BACTRIM [Suspect]
  7. NORVIR [Suspect]
  8. FOSAMPRENAVIR [Suspect]
     Dates: start: 20050329, end: 20060623
  9. COMBIVIR [Suspect]
     Dates: start: 20050928, end: 20060623

REACTIONS (11)
  - AIDS ENCEPHALOPATHY [None]
  - DEPRESSION [None]
  - DRUG INEFFECTIVE [None]
  - DRUG TOXICITY [None]
  - DYSPEPSIA [None]
  - GLAUCOMA [None]
  - MONONEUROPATHY [None]
  - OPTIC NEURITIS RETROBULBAR [None]
  - SCOTOMA [None]
  - TOOTH ABSCESS [None]
  - TRIGEMINAL NEURALGIA [None]
